FAERS Safety Report 18324933 (Version 1)
Quarter: 2020Q3

REPORT INFORMATION
  Report Type: Spontaneous
  Country: US (occurrence: US)
  Receive Date: 20200929
  Receipt Date: 20200929
  Transmission Date: 20201103
  Serious: No
  Sender: FDA-Public Use
  Company Number: None

PATIENT
  Age: 29 Year
  Sex: Female
  Weight: 126 kg

DRUGS (3)
  1. LANTUS SOLOSTAR [Suspect]
     Active Substance: INSULIN GLARGINE
     Dates: start: 20200915
  2. LISPRO PEN [Suspect]
     Active Substance: INSULIN LISPRO
     Dates: start: 20200915
  3. BD STERILE NEEDLE 0.23MM X 4MM 32G X 5/32^ [Suspect]
     Active Substance: DEVICE
     Indication: GESTATIONAL DIABETES
     Dates: start: 20200915

REACTIONS (3)
  - Device difficult to use [None]
  - Product quality issue [None]
  - Needle issue [None]

NARRATIVE: CASE EVENT DATE: 20200929
